FAERS Safety Report 4822718-9 (Version None)
Quarter: 2005Q4

REPORT INFORMATION
  Report Type: 
  Country: None (occurrence: None)
  Receive Date: 20051108
  Receipt Date: 20051025
  Transmission Date: 20060501
  Serious: Yes (Hospitalization)
  Sender: FDA-Public Use
  Company Number: FRWYE086325OCT05

PATIENT
  Sex: Female

DRUGS (7)
  1. ENBREL [Suspect]
     Indication: ASTHMA
     Dosage: UNKNOWN
     Route: 058
     Dates: start: 20050730, end: 20050826
  2. SOLU-MEDROL [Suspect]
     Route: 048
  3. IMUREL [Suspect]
     Indication: COLITIS
     Route: 048
  4. IMODIUM [Concomitant]
     Indication: COLITIS
     Dosage: ON REQUEST
     Route: 048
  5. POTASSIUM GLUCONATE TAB [Concomitant]
     Indication: COLITIS
     Dosage: UNKNOWN
     Route: 048
  6. PULMICORT [Concomitant]
     Indication: ASTHMA
     Dosage: UNKNOWN
     Route: 055
  7. SEREVENT [Concomitant]
     Indication: ASTHMA
     Dosage: UNKNOWN
     Route: 055

REACTIONS (7)
  - ASTHMA [None]
  - CONDITION AGGRAVATED [None]
  - PARONYCHIA [None]
  - PYODERMA GANGRENOSUM [None]
  - PYREXIA [None]
  - RASH PUSTULAR [None]
  - STAPHYLOCOCCAL INFECTION [None]
